FAERS Safety Report 10094361 (Version 1)
Quarter: 2014Q2

REPORT INFORMATION
  Report Type: Spontaneous
  Country: FR (occurrence: None)
  Receive Date: 20140418
  Receipt Date: 20140418
  Transmission Date: 20141212
  Serious: Yes (Death, Life-Threatening, Hospitalization, Other)
  Sender: FDA-Public Use
  Company Number: FK201401351

PATIENT
  Age: 65 Year
  Sex: Male

DRUGS (6)
  1. GENTAMICIN [Suspect]
     Indication: ENDOCARDITIS
     Dosage: 200 MG 1 IN 24 HR, UNKNOWN
     Dates: start: 2009, end: 2009
  2. GENTAMICIN [Suspect]
     Indication: PYREXIA
     Dosage: 200 MG 1 IN 24 HR, UNKNOWN
     Dates: start: 2009, end: 2009
  3. VANCOMYCIN (VANCOMYCIN) [Concomitant]
  4. AMOXICILLIN (AMOXICILLIN) [Concomitant]
  5. PIPERACILLIN (PIPERACILLIN) [Concomitant]
  6. OFLOXACIN (OFLOXACIN) (OFLOXACIN) [Concomitant]

REACTIONS (4)
  - Pulmonary embolism [None]
  - Hypovolaemia [None]
  - Renal failure acute [None]
  - Toxicity to various agents [None]
